FAERS Safety Report 6848030-4 (Version None)
Quarter: 2010Q3

REPORT INFORMATION
  Report Type: 
  Country: None (occurrence: None)
  Receive Date: 20100716
  Receipt Date: 20100706
  Transmission Date: 20110219
  Serious: Yes (Death, Other)
  Sender: FDA-Public Use
  Company Number: ZA-ABBOTT-10P-143-0649448-00

PATIENT
  Age: 30 Year
  Sex: Male

DRUGS (7)
  1. EPILIM [Interacting]
     Indication: CONVULSION
     Route: 048
     Dates: end: 20100607
  2. ALUVIA TABLETS [Interacting]
     Indication: ACQUIRED IMMUNODEFICIENCY SYNDROME
     Route: 048
     Dates: end: 20100607
  3. RIFAFOUR E [Interacting]
     Indication: PRODUCT USED FOR UNKNOWN INDICATION
     Dosage: 150MG/75MG/400MG/275MG
     Route: 048
     Dates: end: 20100607
  4. PYRIDOXINE HCL [Suspect]
     Indication: PRODUCT USED FOR UNKNOWN INDICATION
     Route: 065
     Dates: end: 20100607
  5. TEGRETOL [Concomitant]
     Indication: PRODUCT USED FOR UNKNOWN INDICATION
     Dates: end: 20100607
  6. RIVOTRIL [Concomitant]
     Indication: PRODUCT USED FOR UNKNOWN INDICATION
     Dates: end: 20100607
  7. PHENYTOIN [Concomitant]
     Indication: CONVULSION
     Route: 048

REACTIONS (4)
  - CONVULSION [None]
  - DRUG INTERACTION [None]
  - DRUG LEVEL BELOW THERAPEUTIC [None]
  - MULTI-ORGAN FAILURE [None]
